FAERS Safety Report 7278429-6 (Version None)
Quarter: 2011Q1

REPORT INFORMATION
  Report Type: 
  Country: None (occurrence: None)
  Receive Date: 20110207
  Receipt Date: 20110131
  Transmission Date: 20110831
  Serious: Yes (Hospitalization, Other)
  Sender: FDA-Public Use
  Company Number: US-US-EMD SERONO, INC.-230632J10USA

PATIENT
  Sex: Female

DRUGS (3)
  1. CHOLESTEROL LOWERING DRUG [Concomitant]
     Indication: BLOOD CHOLESTEROL
  2. REBIF [Suspect]
     Indication: PRODUCT USED FOR UNKNOWN INDICATION
     Route: 058
     Dates: start: 20091021
  3. UNSPECIFIED MEDICATION [Concomitant]

REACTIONS (12)
  - DIVERTICULITIS [None]
  - RENAL FAILURE [None]
  - FALL [None]
  - HEADACHE [None]
  - HEAD INJURY [None]
  - ABNORMAL BEHAVIOUR [None]
  - WEIGHT DECREASED [None]
  - COLITIS [None]
  - DEHYDRATION [None]
  - HEPATIC ENZYME INCREASED [None]
  - INFLUENZA LIKE ILLNESS [None]
  - INJECTION SITE INJURY [None]
